FAERS Safety Report 5475319-6 (Version None)
Quarter: 2007Q3

REPORT INFORMATION
  Report Type: 
  Country: None (occurrence: None)
  Receive Date: 20070928
  Receipt Date: 20070918
  Transmission Date: 20080115
  Serious: Yes (Hospitalization)
  Sender: FDA-Public Use
  Company Number: 163-C5013-07060764

PATIENT
  Age: 51 Year
  Sex: Female
  Weight: 90.1 kg

DRUGS (27)
  1. CC-5013 (LENALIDOMIDE) (5 MILLIGRAM, CAPSULES) [Suspect]
     Indication: COMPLEX REGIONAL PAIN SYNDROME
     Dosage: 10 MG, 2 IN  1 D, ORAL
     Route: 048
     Dates: start: 20051219, end: 20070726
  2. ORPHENADRINE CR (ORPHENADRINE) [Concomitant]
  3. OXYCODONE SR (OXYCODONE) [Concomitant]
  4. OXYCODONE /APAP (OXYCODONE/APAP) [Concomitant]
  5. TRAMADOL HCL [Concomitant]
  6. NEOMYCIN POLYMYXIN B SULFATE/HYDROCORTISONE (OTOSPORIN) (EAR DROPS) [Concomitant]
  7. BACLOFEN [Concomitant]
  8. TOPROL-XL [Concomitant]
  9. COMPAZINE [Concomitant]
  10. PHENERGAN [Concomitant]
  11. COLACE (DOCUSATE SODIUM) [Concomitant]
  12. EFFERXOR XR (VENLAFAXINE HYDROCHLORIDE) [Concomitant]
  13. OMEPRAZOLE MAGNESIUM (OMEPRAZOLE MAGNESIUM) [Concomitant]
  14. HYZAAR [Concomitant]
  15. ZANTAC (RANITDINE HYDROCHLORIDE) [Concomitant]
  16. DETROL [Concomitant]
  17. SULFACETAMIDE SODIUM [Concomitant]
  18. HYDROXYZINE [Concomitant]
  19. PREDNISONE TAB [Concomitant]
  20. HYDROCHLOROTHIAZIDE [Concomitant]
  21. LOSARTAN POTASSIUM [Concomitant]
  22. MANTOUX (TUBERCULIN PPD) [Concomitant]
  23. STEROIDS [Concomitant]
  24. GABAPENTIN [Concomitant]
  25. MULTI-VITAMINS [Concomitant]
  26. TORADOL [Concomitant]
  27. PROCHLORPERAZINE MALEATE [Concomitant]

REACTIONS (25)
  - ALVEOLITIS ALLERGIC [None]
  - BRONCHOALVEOLAR LAVAGE ABNORMAL [None]
  - COLLAPSE OF LUNG [None]
  - CONSTIPATION [None]
  - DECREASED APPETITE [None]
  - DYSGEUSIA [None]
  - FUNGUS SPUTUM TEST POSITIVE [None]
  - HEADACHE [None]
  - HEPATIC STEATOSIS [None]
  - INTERSTITIAL LUNG DISEASE [None]
  - LUNG CONSOLIDATION [None]
  - LUNG NEOPLASM [None]
  - LYMPHADENOPATHY MEDIASTINAL [None]
  - ORAL INTAKE REDUCED [None]
  - PNEUMONIA [None]
  - PNEUMONIA ASPIRATION [None]
  - PNEUMONIA PRIMARY ATYPICAL [None]
  - PULMONARY GRANULOMA [None]
  - PULMONARY INFARCTION [None]
  - PULMONARY SARCOIDOSIS [None]
  - RESPIRATORY TRACT INFECTION [None]
  - SINUSITIS [None]
  - THYROID MASS [None]
  - TONGUE COATED [None]
  - WEIGHT DECREASED [None]
